FAERS Safety Report 24141332 (Version 1)
Quarter: 2024Q3

REPORT INFORMATION
  Report Type: Spontaneous
  Country: US (occurrence: US)
  Receive Date: 20240726
  Receipt Date: 20240726
  Transmission Date: 20241017
  Serious: Yes (Other)
  Sender: AMGEN
  Company Number: US-AMGEN-USASP2024147654

PATIENT
  Sex: Female

DRUGS (4)
  1. EPOGEN [Suspect]
     Active Substance: ERYTHROPOIETIN
     Indication: Product used for unknown indication
     Dosage: 400 U/KG, (FOR 3 CONSECUTIVE DAYS)
     Route: 058
  2. EPOGEN [Suspect]
     Active Substance: ERYTHROPOIETIN
     Dosage: 223 U/KG QWK
     Route: 058
  3. HYDROXYUREA [Suspect]
     Active Substance: HYDROXYUREA
     Indication: Product used for unknown indication
     Route: 065
  4. DEFEROXAMINE [Concomitant]
     Active Substance: DEFEROXAMINE MESYLATE
     Dosage: 1000 MILLIGRAM (EVERY OTHER DAY)
     Route: 058

REACTIONS (2)
  - Neutropenia [Unknown]
  - Weight increased [Unknown]
